FAERS Safety Report 4655239-7 (Version None)
Quarter: 2005Q2

REPORT INFORMATION
  Report Type: 
  Country: None (occurrence: None)
  Receive Date: 20050506
  Receipt Date: 20050429
  Transmission Date: 20051028
  Serious: Yes (Other)
  Sender: FDA-Public Use
  Company Number: GB-GLAXOSMITHKLINE-B0379749A

PATIENT
  Age: 68 Year
  Sex: Male

DRUGS (2)
  1. REQUIP [Suspect]
     Indication: PARKINSON'S DISEASE
     Dosage: 6MG THREE TIMES PER DAY
     Route: 048
  2. ASPIRIN [Concomitant]

REACTIONS (1)
  - PSYCHOTIC DISORDER [None]
